FAERS Safety Report 23220755 (Version 2)
Quarter: 2023Q4

REPORT INFORMATION
  Report Type: Spontaneous
  Country: ES (occurrence: ES)
  Receive Date: 20231123
  Receipt Date: 20231228
  Transmission Date: 20240109
  Serious: Yes (Other)
  Sender: FDA-Public Use
  Company Number: ES-002147023-NVSC2023ES247286

PATIENT
  Age: 66 Year
  Sex: Male

DRUGS (1)
  1. ELTROMBOPAG [Suspect]
     Active Substance: ELTROMBOPAG
     Indication: Aplasia
     Dosage: 150 MG, QD
     Route: 065

REACTIONS (5)
  - Hyperbilirubinaemia [Unknown]
  - Serum colour abnormal [Unknown]
  - Gamma-glutamyltransferase increased [Unknown]
  - Blood alkaline phosphatase [Unknown]
  - Product use in unapproved indication [Unknown]
